FAERS Safety Report 24983556 (Version 1)
Quarter: 2025Q1

REPORT INFORMATION
  Report Type: Spontaneous
  Country: US (occurrence: US)
  Receive Date: 20250219
  Receipt Date: 20250219
  Transmission Date: 20250408
  Serious: Yes (Death, Hospitalization)
  Sender: ENDO
  Company Number: US-ENDO USA, INC.-2025-000432

PATIENT
  Age: 40 Year
  Sex: Female

DRUGS (2)
  1. BUPROPION HYDROCHLORIDE [Suspect]
     Active Substance: BUPROPION HYDROCHLORIDE
     Indication: Product used for unknown indication
     Route: 048
  2. ALCOHOL [Suspect]
     Active Substance: ALCOHOL
     Indication: Product used for unknown indication
     Route: 048

REACTIONS (19)
  - Completed suicide [Fatal]
  - Pulseless electrical activity [Fatal]
  - Hyporeflexia [Unknown]
  - White blood cell count increased [Unknown]
  - Ventricular tachycardia [Unknown]
  - Psychomotor hyperactivity [Unknown]
  - Electrocardiogram QRS complex prolonged [Unknown]
  - Electrocardiogram QT prolonged [Unknown]
  - Hypokinesia [Unknown]
  - Generalised tonic-clonic seizure [Unknown]
  - Tachycardia [Recovering/Resolving]
  - Disorientation [Unknown]
  - Aggression [Unknown]
  - Mental impairment [Unknown]
  - Myoclonus [Unknown]
  - Hypotension [Unknown]
  - Body temperature increased [Unknown]
  - Intentional overdose [Fatal]
  - Electroencephalogram abnormal [Unknown]

NARRATIVE: CASE EVENT DATE: 20230101
